FAERS Safety Report 18713707 (Version 1)
Quarter: 2021Q1

REPORT INFORMATION
  Report Type: Spontaneous
  Country: NL (occurrence: NL)
  Receive Date: 20210107
  Receipt Date: 20210107
  Transmission Date: 20210419
  Serious: Yes (Hospitalization, Disabling, Other)
  Sender: FDA-Public Use
  Company Number: NL-SA-2021SA001352

PATIENT

DRUGS (2)
  1. OXALIPLATIN. [Suspect]
     Active Substance: OXALIPLATIN
     Indication: RECTOSIGMOID CANCER
     Dosage: DOSE OF CURRENT CYCLE?200, CUMULATIVE DOSE?200,
     Route: 041
  2. CAPECITABINE. [Concomitant]
     Active Substance: CAPECITABINE
     Indication: RECTOSIGMOID CANCER
     Dosage: UNK UNK, QCY
     Route: 041

REACTIONS (17)
  - Loss of personal independence in daily activities [Recovering/Resolving]
  - Nausea [Unknown]
  - Infusion site pain [Recovered/Resolved]
  - Diarrhoea [Recovering/Resolving]
  - Neurotoxicity [Recovering/Resolving]
  - Hypoaesthesia [Recovering/Resolving]
  - Oropharyngeal pain [Recovered/Resolved]
  - Infusion site hypoaesthesia [Recovered/Resolved]
  - Muscle spasms [Recovering/Resolving]
  - Fatigue [Recovering/Resolving]
  - Contusion [Unknown]
  - Neuropathy peripheral [Recovering/Resolving]
  - Malaise [Unknown]
  - Paraesthesia [Recovering/Resolving]
  - Asthenia [Recovering/Resolving]
  - Vomiting [Recovered/Resolved]
  - Impaired quality of life [Unknown]
